FAERS Safety Report 8401287-0 (Version None)
Quarter: 2012Q2

REPORT INFORMATION
  Report Type: 
  Country: None (occurrence: None)
  Receive Date: 20120530
  Receipt Date: 20120530
  Transmission Date: 20120825
  Serious: Yes (Hospitalization)
  Sender: FDA-Public Use
  Company Number: None

PATIENT
  Age: 79 Year
  Sex: Female
  Weight: 85 kg

DRUGS (12)
  1. CYCLOBENZAPRINE [Concomitant]
  2. SYNTHROID [Concomitant]
  3. MELOXICAM [Suspect]
     Indication: PAIN
     Dosage: 7.5 MG TWICE DAILY ORAL
     Route: 048
  4. ASPIRIN [Concomitant]
  5. KEFLEX [Concomitant]
  6. VITAMIN D [Concomitant]
  7. SPIRIVA [Concomitant]
  8. MIRALAX [Concomitant]
  9. SPIRONOLACTONE [Concomitant]
  10. DABIGATRAN 150 MG [Suspect]
     Indication: ATRIAL FIBRILLATION
     Dosage: 150 MG TWICE DAILY ORAL
     Route: 048
  11. FUROSEMIDE [Concomitant]
  12. ATORVASTATIN CALCIUM [Concomitant]

REACTIONS (2)
  - HAEMOGLOBIN DECREASED [None]
  - BACK PAIN [None]
